FAERS Safety Report 23337557 (Version 1)
Quarter: 2023Q4

REPORT INFORMATION
  Report Type: Spontaneous
  Country: FR (occurrence: FR)
  Receive Date: 20231226
  Receipt Date: 20231226
  Transmission Date: 20240109
  Serious: Yes (Other)
  Sender: FDA-Public Use
  Company Number: None

PATIENT
  Age: 89 Year
  Sex: Female

DRUGS (2)
  1. ELIQUIS [Suspect]
     Active Substance: APIXABAN
     Indication: Product used for unknown indication
     Route: 048
     Dates: start: 202310, end: 20231114
  2. IOMERON [Suspect]
     Active Substance: IOMEPROL
     Indication: High-resolution computerised tomogram of lung
     Route: 042
     Dates: start: 20231108, end: 20231108

REACTIONS (2)
  - Eosinophilia [Not Recovered/Not Resolved]
  - Erythema [Recovering/Resolving]

NARRATIVE: CASE EVENT DATE: 20231108
